FAERS Safety Report 21580379 (Version 3)
Quarter: 2022Q4

REPORT INFORMATION
  Report Type: Report from Study
  Country: GR (occurrence: GR)
  Receive Date: 20221110
  Receipt Date: 20221212
  Transmission Date: 20230113
  Serious: Yes (Death, Hospitalization, Other)
  Sender: FDA-Public Use
  Company Number: GR-ABBVIE-4170610

PATIENT
  Age: 78 Year
  Sex: Female
  Weight: 80 kg

DRUGS (4)
  1. CARBIDOPA\LEVODOPA [Suspect]
     Active Substance: CARBIDOPA\LEVODOPA
     Indication: Parkinson^s disease
     Dosage: MORNING DOSE: 11.4 ML; CONTINUOUS RATE: 4.4 ML/H; EXTRA DOSE: 1.5 ML, FIRST ADMIN DATE 26 JUL 202...
     Route: 050
  2. CARBIDOPA\LEVODOPA [Suspect]
     Active Substance: CARBIDOPA\LEVODOPA
     Dosage: MORNING DOSE: 11.4 ML; CONTINUOUS RATE: 4.7 ML/H; EXTRA DOSE: 1.5 ML, FIRST ADMIN DATE 12 OCT 202...
     Route: 050
  3. CARBIDOPA\LEVODOPA [Suspect]
     Active Substance: CARBIDOPA\LEVODOPA
     Dosage: MORNING DOSE: 11.5ML; CONTINUOUS RATE: 5.0ML/H; EXTRA DOSE: 1.5 ML, FIRST AND LAST ADMIN DATE 2022
     Route: 050
  4. CARBIDOPA\LEVODOPA [Suspect]
     Active Substance: CARBIDOPA\LEVODOPA
     Dosage: MORNING DOSE: 11.5ML; CONTINUOUS RATE: 5.0ML/H; EXTRA DOSE: 2 ML, FIRST ADMIN DATE 2022
     Route: 050

REACTIONS (13)
  - Aspiration [Fatal]
  - Abnormal dreams [Not Recovered/Not Resolved]
  - Hallucination [Not Recovered/Not Resolved]
  - Dysphagia [Recovering/Resolving]
  - Sepsis [Not Recovered/Not Resolved]
  - Blood sodium decreased [Recovering/Resolving]
  - Haematocrit decreased [Recovering/Resolving]
  - Urinary tract infection [Not Recovered/Not Resolved]
  - Decubitus ulcer [Not Recovered/Not Resolved]
  - Blood potassium decreased [Recovering/Resolving]
  - Device issue [Unknown]
  - Hiatus hernia [Unknown]
  - Hypophagia [Unknown]

NARRATIVE: CASE EVENT DATE: 20220101
